FAERS Safety Report 18277373 (Version 2)
Quarter: 2021Q3

REPORT INFORMATION
  Report Type: Spontaneous
  Country: US (occurrence: US)
  Receive Date: 20200917
  Receipt Date: 20210824
  Transmission Date: 20211014
  Serious: No
  Sender: FDA-Public Use
  Company Number: NVSC2020US252476

PATIENT
  Age: 1 Year
  Sex: Female

DRUGS (1)
  1. ZOLGENSMA [Suspect]
     Active Substance: ONASEMNOGENE ABEPARVOVEC-XIOI
     Indication: SPINAL MUSCULAR ATROPHY
     Route: 042

REACTIONS (5)
  - Nasal congestion [Unknown]
  - Seasonal allergy [Unknown]
  - Speech disorder developmental [Unknown]
  - Dyspnoea [Unknown]
  - Selective eating disorder [Unknown]
